FAERS Safety Report 10260849 (Version 2)
Quarter: 2014Q2

REPORT INFORMATION
  Report Type: Spontaneous
  Country: GB (occurrence: GB)
  Receive Date: 20140626
  Receipt Date: 20140626
  Transmission Date: 20141212
  Serious: Yes (Other)
  Sender: FDA-Public Use
  Company Number: GB-009507513-1101GBR00055B1

PATIENT
  Sex: Female
  Weight: 1.51 kg

DRUGS (5)
  1. ISENTRESS [Suspect]
     Dosage: 800 MG/DAY
     Route: 064
  2. EPZICOM [Suspect]
     Dosage: TOTAL DAILY DOSE: 1 TABLE/CAP
     Route: 064
  3. VIREAD [Suspect]
     Dosage: 245 MG/DAY
     Route: 064
     Dates: end: 20110114
  4. REYATAZ [Suspect]
     Dosage: 300 MG/DAY
     Route: 064
  5. NORVIR [Suspect]
     Dosage: 100 MG /DAY
     Route: 064

REACTIONS (4)
  - Small for dates baby [Unknown]
  - Small for dates baby [Unknown]
  - Premature baby [Unknown]
  - Foetal exposure during pregnancy [Recovered/Resolved]
